FAERS Safety Report 17846887 (Version 2)
Quarter: 2020Q2

REPORT INFORMATION
  Report Type: Spontaneous
  Country: CN (occurrence: CN)
  Receive Date: 20200601
  Receipt Date: 20200623
  Transmission Date: 20200714
  Serious: Yes (Hospitalization, Other)
  Sender: FDA-Public Use
  Company Number: CN-PFIZER INC-2020211459

PATIENT
  Age: 55 Year
  Sex: Female

DRUGS (6)
  1. FENG KE SONG [Concomitant]
     Indication: ANTI-INFECTIVE THERAPY
     Dosage: 40 MG, 1X/DAY
     Dates: start: 20200414, end: 20200515
  2. DIFLUCAN [Suspect]
     Active Substance: FLUCONAZOLE
     Indication: ANTI-INFECTIVE THERAPY
     Dosage: 0.6 G, 1X/DAY
     Route: 041
     Dates: start: 20200405, end: 20200523
  3. COMPOUND AMINO ACID (9AA) [CYSTEINE HYDROCHLORIDE;HISTIDINE;ISOLEUCINE [Concomitant]
     Indication: NUTRITIONAL SUPPLEMENTATION
     Dosage: 500 ML, 1X/DAY
     Dates: start: 20200414, end: 20200512
  4. WATER-SOLUBLE VITAMINS [Concomitant]
     Indication: NUTRITIONAL SUPPLEMENTATION
     Dosage: 1 DF, 1X/DAY
     Dates: start: 20200414, end: 20200512
  5. DIFLUCAN [Suspect]
     Active Substance: FLUCONAZOLE
     Indication: ENCEPHALITIS
  6. SODIUM CHLORIDE. [Concomitant]
     Active Substance: SODIUM CHLORIDE
     Indication: ENCEPHALITIS
     Dosage: 0.6 G, 1X/DAY
     Route: 041
     Dates: start: 20200405

REACTIONS (4)
  - Skin laxity [Recovering/Resolving]
  - Erythema multiforme [Recovering/Resolving]
  - Pruritus [Recovering/Resolving]
  - Drug ineffective [Unknown]

NARRATIVE: CASE EVENT DATE: 20200512
